FAERS Safety Report 25487004 (Version 6)
Quarter: 2025Q3

REPORT INFORMATION
  Report Type: Report from Study
  Country: US (occurrence: US)
  Receive Date: 20250627
  Receipt Date: 20250929
  Transmission Date: 20251020
  Serious: Yes (Hospitalization, Other)
  Sender: UCB
  Company Number: US-UCBSA-2025038573

PATIENT
  Age: 15 Year
  Sex: Male
  Weight: 91 kg

DRUGS (4)
  1. FINTEPLA [Suspect]
     Active Substance: FENFLURAMINE
     Indication: Seizure
     Dates: start: 20241227
  2. FINTEPLA [Suspect]
     Active Substance: FENFLURAMINE
     Indication: Tuberous sclerosis complex
     Dosage: 5.9 MILLILITER, 2X/DAY (BID)
     Route: 048
     Dates: end: 20250110
  3. FINTEPLA [Suspect]
     Active Substance: FENFLURAMINE
     Indication: Epilepsy
     Dosage: 5.9 MILLILITER, 2X/DAY (BID)
     Route: 048
     Dates: start: 20250103
  4. FINTEPLA [Suspect]
     Active Substance: FENFLURAMINE
     Indication: Lennox-Gastaut syndrome
     Dosage: 13 MILLIGRAM, 2X/DAY (BID)
     Route: 048
     Dates: start: 20250111

REACTIONS (4)
  - Autism spectrum disorder [Recovering/Resolving]
  - Catatonia [Recovering/Resolving]
  - Skin discolouration [Not Recovered/Not Resolved]
  - Contusion [Not Recovered/Not Resolved]

NARRATIVE: CASE EVENT DATE: 20250601
